FAERS Safety Report 4876524-X (Version None)
Quarter: 2006Q1

REPORT INFORMATION
  Report Type: 
  Country: None (occurrence: None)
  Receive Date: 20060110
  Receipt Date: 20051012
  Transmission Date: 20060701
  Serious: Yes (Disabling)
  Sender: FDA-Public Use
  Company Number: GB-GLAXOSMITHKLINE-B0397671A

PATIENT
  Age: 55 Year
  Sex: Male
  Weight: 85 kg

DRUGS (5)
  1. AVANDAMET [Suspect]
     Dates: start: 20050311
  2. SALBUTAMOL [Concomitant]
     Dosage: 2PUFF FOUR TIMES PER DAY
     Route: 055
     Dates: start: 20050822
  3. SALMETEROL [Concomitant]
     Dosage: 25MCG TWICE PER DAY
     Route: 055
     Dates: start: 20050822
  4. ASPIRIN [Concomitant]
     Dosage: 75MG PER DAY
     Route: 065
     Dates: start: 20050711
  5. ENALAPRIL [Concomitant]
     Dosage: 2.5MG PER DAY
     Dates: start: 20041108

REACTIONS (4)
  - DISTURBANCE IN ATTENTION [None]
  - DIZZINESS [None]
  - HEADACHE [None]
  - HYPOGLYCAEMIA [None]
